FAERS Safety Report 6704214-7 (Version None)
Quarter: 2010Q2

REPORT INFORMATION
  Report Type: 
  Country: None (occurrence: None)
  Receive Date: 20100423
  Receipt Date: 20100125
  Transmission Date: 20101027
  Serious: No
  Sender: FDA-Public Use
  Company Number: ALL1-2010-00375

PATIENT
  Age: 59 Year
  Sex: 0

DRUGS (1)
  1. VYVANSE [Suspect]
     Dosage: MG, ORAL
     Route: 048

REACTIONS (2)
  - DRUG ERUPTION [None]
  - GASTROENTERITIS [None]
